FAERS Safety Report 23740887 (Version 4)
Quarter: 2024Q2

REPORT INFORMATION
  Report Type: Other
  Country: CZ (occurrence: None)
  Receive Date: 20240415
  Receipt Date: 20240608
  Transmission Date: 20240715
  Serious: No
  Sender: FDA-Public Use
  Company Number: CZ-ROCHE-3541853

PATIENT
  Age: 48 Year
  Sex: Male

DRUGS (1)
  1. OCREVUS [Suspect]
     Active Substance: OCRELIZUMAB
     Indication: Product used for unknown indication
     Route: 065
     Dates: start: 201810

REACTIONS (4)
  - Eczema infected [Recovering/Resolving]
  - Psoriasis [Recovering/Resolving]
  - Onychomycosis [Recovering/Resolving]
  - Superficial inflammatory dermatosis [Unknown]

NARRATIVE: CASE EVENT DATE: 20230801
